FAERS Safety Report 5709002-6 (Version None)
Quarter: 2008Q2

REPORT INFORMATION
  Report Type: 
  Country: None (occurrence: None)
  Receive Date: 20080418
  Receipt Date: 20080318
  Transmission Date: 20081010
  Serious: No
  Sender: FDA-Public Use
  Company Number: US-BAYER-200616194BWH

PATIENT
  Age: 39 Year
  Sex: Female
  Weight: 70 kg

DRUGS (5)
  1. AVELOX [Suspect]
     Indication: SINUSITIS
     Dosage: TOTAL DAILY DOSE: 400 MG  UNIT DOSE: 400 MG
     Route: 048
     Dates: start: 20061023, end: 20061026
  2. SYNTHROID [Concomitant]
     Dates: start: 19990101
  3. MULTI-VITAMIN [Concomitant]
     Dates: start: 19900101
  4. CALTRATE [Concomitant]
     Dates: start: 20000101
  5. PRO-BIOTIC [Concomitant]
     Dates: start: 20040101

REACTIONS (2)
  - BLISTER [None]
  - HYPERSENSITIVITY [None]
